FAERS Safety Report 5465487-4 (Version None)
Quarter: 2007Q3

REPORT INFORMATION
  Report Type: 
  Country: None (occurrence: None)
  Receive Date: 20070920
  Receipt Date: 20070920
  Transmission Date: 20080115
  Serious: Yes (Other)
  Sender: FDA-Public Use
  Company Number: None

PATIENT
  Age: 81 Year
  Sex: Male

DRUGS (12)
  1. ENALAPRIL MALEATE [Suspect]
     Indication: BLOOD PRESSURE
     Dosage: TAKE 1 TABLET EVERY 12 HOURS
     Dates: start: 20070101
  2. ACTOS [Concomitant]
  3. AGGRENOX [Concomitant]
  4. CARBIDOPA AND LEVODOPA [Concomitant]
  5. SERTRALINE [Concomitant]
  6. SIMVASTATIN [Concomitant]
  7. ENABLEX [Concomitant]
  8. EXELON [Concomitant]
  9. NAMENDA [Concomitant]
  10. TOPROL-XL [Concomitant]
  11. METFORMIN [Concomitant]
  12. NITROGLYCERIN [Concomitant]

REACTIONS (1)
  - PHARMACEUTICAL PRODUCT COMPLAINT [None]
